FAERS Safety Report 9935253 (Version 2)
Quarter: 2014Q1

REPORT INFORMATION
  Report Type: Report from Study
  Country: JP (occurrence: JP)
  Receive Date: 20140228
  Receipt Date: 20140314
  Transmission Date: 20141002
  Serious: Yes (Other)
  Sender: FDA-Public Use
  Company Number: JP-UCBSA-113216

PATIENT
  Age: 51 Year
  Sex: Female

DRUGS (4)
  1. E KEPPRA [Suspect]
     Indication: PARTIAL SEIZURES WITH SECONDARY GENERALISATION
     Route: 048
     Dates: start: 20131115
  2. E KEPPRA [Suspect]
     Indication: PARTIAL SEIZURES WITH SECONDARY GENERALISATION
     Route: 048
     Dates: start: 20131011, end: 20131114
  3. EXCEGRAN [Concomitant]
     Dosage: DAILY DOSE: 400 MG
     Route: 048
     Dates: end: 20131114
  4. EXCEGRAN [Concomitant]
     Dosage: DAILY DOSE: 200 MG
     Route: 048
     Dates: start: 20131115

REACTIONS (1)
  - White blood cell count decreased [Recovering/Resolving]
